FAERS Safety Report 4724477-7 (Version None)
Quarter: 2005Q3

REPORT INFORMATION
  Report Type: 
  Country: None (occurrence: None)
  Receive Date: 20050721
  Receipt Date: 20050708
  Transmission Date: 20060218
  Serious: Yes (Other)
  Sender: FDA-Public Use
  Company Number: 2005059797

PATIENT
  Age: 27 Year
  Sex: Male

DRUGS (1)
  1. BEXTRA [Suspect]
     Indication: INFLUENZA LIKE ILLNESS
     Dosage: 40 MG (40 MG, 1 IN 1 D), ORAL
     Route: 048
     Dates: start: 20050401, end: 20050401

REACTIONS (1)
  - PRURITUS [None]
